FAERS Safety Report 19985648 (Version 1)
Quarter: 2021Q4

REPORT INFORMATION
  Report Type: Spontaneous
  Country: US (occurrence: US)
  Receive Date: 20211022
  Receipt Date: 20211022
  Transmission Date: 20220303
  Serious: Yes (Other)
  Sender: FDA-Public Use
  Company Number: US-MYLANLABS-2021M1074360

PATIENT
  Age: 70 Year
  Sex: Male

DRUGS (6)
  1. DIGOXIN [Suspect]
     Active Substance: DIGOXIN
     Indication: Heart rate increased
     Dosage: UNK
     Route: 042
  2. DIGOXIN [Suspect]
     Active Substance: DIGOXIN
     Indication: Atrial flutter
  3. AMIODARONE [Suspect]
     Active Substance: AMIODARONE
     Indication: Heart rate increased
     Dosage: UNK
     Route: 042
  4. AMIODARONE [Suspect]
     Active Substance: AMIODARONE
     Indication: Atrial flutter
  5. AMIODARONE [Suspect]
     Active Substance: AMIODARONE
     Indication: Heart rate increased
     Dosage: UNK
     Route: 040
  6. AMIODARONE [Suspect]
     Active Substance: AMIODARONE
     Indication: Atrial flutter

REACTIONS (1)
  - Treatment failure [Unknown]
